FAERS Safety Report 5935215-4 (Version None)
Quarter: 2008Q4

REPORT INFORMATION
  Report Type: 
  Country: None (occurrence: None)
  Receive Date: 20081028
  Receipt Date: 20081023
  Transmission Date: 20090506
  Serious: No
  Sender: FDA-Public Use
  Company Number: APP200801022

PATIENT
  Sex: Male

DRUGS (4)
  1. SENSORCAINE-MPF (BUPIVACAINE HYDROCHLORIDE) [Suspect]
     Indication: CATARACT
     Dosage: , ONCE
     Dates: start: 20081001, end: 20081001
  2. LIDOCAINE [Suspect]
     Indication: CATARACT
     Dosage: , ONCE
     Dates: start: 20081001, end: 20081001
  3. EPINEPHRINE [Suspect]
     Indication: CATARACT
     Dosage: , ONCE
  4. BSS [Suspect]
     Indication: CATARACT
     Dosage: , ONCE
     Dates: start: 20081001, end: 20081001

REACTIONS (2)
  - CORNEAL OEDEMA [None]
  - KERATITIS [None]
